FAERS Safety Report 6757021-3 (Version None)
Quarter: 2010Q2

REPORT INFORMATION
  Report Type: 
  Country: None (occurrence: None)
  Receive Date: 20100604
  Receipt Date: 20100524
  Transmission Date: 20101027
  Serious: Yes (Other)
  Sender: FDA-Public Use
  Company Number: US-ELI_LILLY_AND_COMPANY-US201005007092

PATIENT
  Age: 60 Year
  Sex: Female

DRUGS (2)
  1. CYMBALTA [Suspect]
     Indication: BIPOLAR I DISORDER
     Dosage: 90 MG, UNK
  2. CLONAZEPAM [Concomitant]

REACTIONS (4)
  - ANXIETY [None]
  - DISABILITY [None]
  - DISTURBANCE IN ATTENTION [None]
  - OFF LABEL USE [None]
